FAERS Safety Report 6761283-6 (Version None)
Quarter: 2010Q2

REPORT INFORMATION
  Report Type: 
  Country: None (occurrence: None)
  Receive Date: 20100608
  Receipt Date: 20100601
  Transmission Date: 20101027
  Serious: Yes (Hospitalization)
  Sender: FDA-Public Use
  Company Number: US-GILEAD-2010-0029540

PATIENT
  Sex: Female

DRUGS (11)
  1. LETAIRIS [Suspect]
     Indication: PULMONARY ARTERIAL HYPERTENSION
     Route: 048
     Dates: start: 20090911
  2. REVATIO [Concomitant]
     Dates: start: 20090810
  3. COUMADIN [Concomitant]
     Dates: start: 20100305
  4. LASIX [Concomitant]
     Dates: start: 20090629
  5. CARDIZEM CD [Concomitant]
     Dates: start: 20100306
  6. LYRICA [Concomitant]
     Dates: start: 20060615
  7. PLAQUENIL [Concomitant]
     Dates: start: 20070510
  8. FLEXERIL [Concomitant]
     Dates: start: 20080117
  9. TRAZODONE HCL [Concomitant]
     Dates: start: 20091208
  10. HUMIRA [Concomitant]
     Dates: start: 20070530
  11. FOLIC ACID [Concomitant]
     Dates: start: 20090615

REACTIONS (3)
  - ASTHMA [None]
  - CHRONIC OBSTRUCTIVE PULMONARY DISEASE [None]
  - RIGHT VENTRICULAR FAILURE [None]
